FAERS Safety Report 19402959 (Version 2)
Quarter: 2021Q2

REPORT INFORMATION
  Report Type: Spontaneous
  Country: GR (occurrence: GR)
  Receive Date: 20210611
  Receipt Date: 20210618
  Transmission Date: 20210717
  Serious: Yes (Hospitalization, Other)
  Sender: FDA-Public Use
  Company Number: GR-ALKEM LABORATORIES LIMITED-GR-ALKEM-2021-03389

PATIENT
  Age: 49 Year
  Sex: Male

DRUGS (4)
  1. COLCHICINE. [Suspect]
     Active Substance: COLCHICINE
     Indication: PERICARDITIS
     Dosage: 0.5 MILLIGRAM, BID
     Route: 065
  2. EZETIMIBE. [Concomitant]
     Active Substance: EZETIMIBE
     Indication: LIPIDS ABNORMAL
     Dosage: 10 MILLIGRAM, QD
     Route: 065
  3. ATORVASTATIN CALCIUM. [Suspect]
     Active Substance: ATORVASTATIN CALCIUM
     Indication: LIPIDS DECREASED
     Dosage: 20 MILLIGRAM, QD
     Route: 065
  4. ROSUVASTATIN. [Suspect]
     Active Substance: ROSUVASTATIN
     Indication: LIPIDS ABNORMAL
     Dosage: 40 MILLIGRAM, QD
     Route: 065

REACTIONS (4)
  - Rhabdomyolysis [Recovered/Resolved]
  - Myelosuppression [Recovered/Resolved]
  - Drug interaction [Unknown]
  - Drug ineffective [Unknown]
